FAERS Safety Report 7960343-1 (Version None)
Quarter: 2011Q4

REPORT INFORMATION
  Report Type: 
  Country: None (occurrence: None)
  Receive Date: 20111206
  Receipt Date: 20111206
  Transmission Date: 20120403
  Serious: Yes (Death, Hospitalization)
  Sender: FDA-Public Use
  Company Number: PHHO2010GB08154

PATIENT
  Sex: Female
  Weight: 82 kg

DRUGS (3)
  1. AFINITOR [Suspect]
     Dosage: UNK
     Route: 048
     Dates: start: 20100518, end: 20100518
  2. AFINITOR [Suspect]
     Indication: METASTATIC GASTRIC CANCER
     Dosage: 10 MG, QD
     Route: 048
     Dates: start: 20100511, end: 20100515
  3. AFINITOR [Suspect]
     Dosage: OFF TREATMENT
     Dates: start: 20100517, end: 20100517

REACTIONS (5)
  - METASTASES TO LIVER [None]
  - ASTHENIA [None]
  - GASTROOESOPHAGEAL CANCER [None]
  - BACK PAIN [None]
  - METASTATIC NEOPLASM [None]
